FAERS Safety Report 15236158 (Version 1)
Quarter: 2018Q3

REPORT INFORMATION
  Report Type: Spontaneous
  Country: US (occurrence: US)
  Receive Date: 20180709
  Receipt Date: 20180709
  Transmission Date: 20181010
  Serious: No
  Sender: FDA-Public Use
  Company Number: None

PATIENT
  Age: 70 Year
  Sex: Male

DRUGS (1)
  1. COPAXONE [Suspect]
     Active Substance: GLATIRAMER ACETATE
     Dates: start: 20160709, end: 20180709

REACTIONS (5)
  - Immediate post-injection reaction [None]
  - Hypersensitivity [None]
  - Hyperhidrosis [None]
  - Injection site urticaria [None]
  - Swollen tongue [None]

NARRATIVE: CASE EVENT DATE: 20180709
